FAERS Safety Report 7161091-0 (Version None)
Quarter: 2010Q4

REPORT INFORMATION
  Report Type: 
  Country: None (occurrence: None)
  Receive Date: 20101215
  Receipt Date: 20101201
  Transmission Date: 20110411
  Serious: Yes (Hospitalization)
  Sender: FDA-Public Use
  Company Number: US-BIOGENIDEC-2010BI042098

PATIENT
  Age: 54 Year
  Sex: Female

DRUGS (2)
  1. TYSABRI [Suspect]
     Indication: MULTIPLE SCLEROSIS
     Route: 042
     Dates: start: 20100428
  2. TYSABRI [Suspect]
     Route: 042
     Dates: start: 20101101

REACTIONS (5)
  - CELLULITIS [None]
  - CONVULSION [None]
  - LOSS OF CONSCIOUSNESS [None]
  - OVERDOSE [None]
  - PAIN [None]
